FAERS Safety Report 5279658-3 (Version None)
Quarter: 2007Q1

REPORT INFORMATION
  Report Type: 
  Country: None (occurrence: None)
  Receive Date: 20070323
  Receipt Date: 20070309
  Transmission Date: 20070707
  Serious: Yes (Other)
  Sender: FDA-Public Use
  Company Number: SPI200700093

PATIENT

DRUGS (8)
  1. AMITIZA [Suspect]
     Indication: IRRITABLE BOWEL SYNDROME
     Dosage: SEE IMAGE
     Dates: start: 20070101, end: 20070101
  2. AMITIZA [Suspect]
     Indication: IRRITABLE BOWEL SYNDROME
     Dosage: SEE IMAGE
     Dates: start: 20070101, end: 20070101
  3. AMITIZA [Suspect]
     Indication: IRRITABLE BOWEL SYNDROME
     Dosage: SEE IMAGE
     Dates: start: 20070308, end: 20070308
  4. SYNTHROID [Concomitant]
  5. SINGULAIR /01362601/ (MONTELUKAST) [Concomitant]
  6. TOPAMAX [Concomitant]
  7. OMEPRAZOLE [Concomitant]
  8. HORMONES NOS [Concomitant]

REACTIONS (5)
  - CHILLS [None]
  - DEAFNESS [None]
  - DIARRHOEA [None]
  - MUSCLE SPASMS [None]
  - TRISMUS [None]
